FAERS Safety Report 10670258 (Version 2)
Quarter: 2015Q1

REPORT INFORMATION
  Report Type: Report from Study
  Country: US (occurrence: US)
  Receive Date: 20141223
  Receipt Date: 20150217
  Transmission Date: 20150720
  Serious: Yes (Hospitalization)
  Sender: FDA-Public Use
  Company Number: US-BIOGENIDEC-2014BI131664

PATIENT
  Age: 34 Year
  Sex: Female
  Weight: 63 kg

DRUGS (18)
  1. ALPRAZOLAM. [Concomitant]
     Active Substance: ALPRAZOLAM
  2. ABILIFY [Concomitant]
     Active Substance: ARIPIPRAZOLE
  3. ROPINIROLE. [Concomitant]
     Active Substance: ROPINIROLE
  4. DIAZEPAM. [Concomitant]
     Active Substance: DIAZEPAM
  5. BACLOFEN. [Concomitant]
     Active Substance: BACLOFEN
  6. LITHIUM CARBONATE. [Concomitant]
     Active Substance: LITHIUM CARBONATE
  7. HYDOCODONE/ APAP [Concomitant]
  8. CARBIDOPA LEVODOPA [Concomitant]
     Active Substance: CARBIDOPA\LEVODOPA
  9. OMEPRAZOLE. [Concomitant]
     Active Substance: OMEPRAZOLE
  10. LAMOTRIGINE. [Concomitant]
     Active Substance: LAMOTRIGINE
  11. PREDNISONE. [Concomitant]
     Active Substance: PREDNISONE
  12. LEVETIRACETA [Concomitant]
  13. TECFIDERA [Suspect]
     Active Substance: DIMETHYL FUMARATE
     Indication: MULTIPLE SCLEROSIS
     Route: 048
     Dates: start: 20141204
  14. MIDODRINE [Concomitant]
     Active Substance: MIDODRINE
  15. GABAPENTIN. [Concomitant]
     Active Substance: GABAPENTIN
  16. TECFIDERA [Suspect]
     Active Substance: DIMETHYL FUMARATE
     Indication: MULTIPLE SCLEROSIS
     Route: 048
     Dates: start: 201408, end: 20141113
  17. TRAMADOL [Concomitant]
     Active Substance: TRAMADOL
  18. OXYBUTYNIN [Concomitant]
     Active Substance: OXYBUTYNIN

REACTIONS (5)
  - Pneumonia [Recovered/Resolved]
  - Multiple sclerosis relapse [Not Recovered/Not Resolved]
  - Hypotension [Recovered/Resolved]
  - Urinary tract infection [Recovered/Resolved]
  - Sepsis [Recovered/Resolved]

NARRATIVE: CASE EVENT DATE: 20141113
